FAERS Safety Report 5271246-8 (Version None)
Quarter: 2007Q1

REPORT INFORMATION
  Report Type: 
  Country: None (occurrence: None)
  Receive Date: 20070321
  Receipt Date: 20070314
  Transmission Date: 20070707
  Serious: Yes (Other)
  Sender: FDA-Public Use
  Company Number: CA-JNJFOC-20070303573

PATIENT
  Sex: Female

DRUGS (10)
  1. TOPAMAX [Suspect]
     Indication: PAIN PROPHYLAXIS
  2. NITROGLYCERIN [Concomitant]
  3. LIPITOR [Concomitant]
     Indication: BLOOD CHOLESTEROL
  4. ELTROXIN [Concomitant]
     Indication: THYROID DISORDER
  5. HYDROCHLOROTHIAZIDE [Concomitant]
     Indication: FLUID RETENTION
  6. PROPRANOLOL [Concomitant]
     Indication: CARDIAC DISORDER
  7. COZAAR [Concomitant]
     Indication: BLOOD PRESSURE
  8. NORVASC [Concomitant]
     Indication: BLOOD PRESSURE
  9. CALCIUM SUPPLEMENT [Concomitant]
  10. VITAMIN B COMPLEX CAP [Concomitant]

REACTIONS (3)
  - FLATULENCE [None]
  - HERPES ZOSTER [None]
  - HYPOAESTHESIA [None]
